FAERS Safety Report 9496353 (Version 3)
Quarter: 2013Q4

REPORT INFORMATION
  Report Type: Report from Study
  Country: MX (occurrence: MX)
  Receive Date: 20130904
  Receipt Date: 20131022
  Transmission Date: 20140711
  Serious: Yes (Hospitalization, Other)
  Sender: FDA-Public Use
  Company Number: MX-ROCHE-1253840

PATIENT
  Age: 50 Year
  Sex: Female
  Weight: 57 kg

DRUGS (5)
  1. HERCEPTIN [Suspect]
     Indication: BREAST CANCER
     Dosage: SOLUTION
     Route: 042
     Dates: start: 201210, end: 2013
  2. HERCEPTIN [Suspect]
     Dosage: SOLUTION
     Route: 042
     Dates: start: 2013, end: 20130723
  3. HERCEPTIN [Suspect]
     Dosage: MOST RECENT DOSE ON 20/AUG/2013
     Route: 065
     Dates: start: 2013, end: 20130820
  4. LETROZOLE [Suspect]
     Indication: BREAST CANCER
     Route: 048
     Dates: start: 2013
  5. LYRICA [Concomitant]
     Indication: PAIN PROPHYLAXIS
     Dosage: CYCLICAL
     Route: 048
     Dates: start: 201210

REACTIONS (6)
  - Angina unstable [Not Recovered/Not Resolved]
  - Dizziness [Recovered/Resolved]
  - Fatigue [Unknown]
  - Hypertriglyceridaemia [Recovering/Resolving]
  - Arthralgia [Recovered/Resolved]
  - Osteoporosis [Not Recovered/Not Resolved]
